FAERS Safety Report 4557983-9 (Version None)
Quarter: 2005Q1

REPORT INFORMATION
  Report Type: 
  Country: None (occurrence: None)
  Receive Date: 20050121
  Receipt Date: 20040405
  Transmission Date: 20050727
  Serious: Yes (Other)
  Sender: FDA-Public Use
  Company Number: US-BRISTOL-MYERS SQUIBB COMPANY-12557146

PATIENT
  Age: 37 Year
  Sex: Male

DRUGS (5)
  1. SERZONE [Suspect]
     Route: 048
     Dates: start: 19991215
  2. NYSTATIN [Concomitant]
  3. TYLENOL W/ CODEINE NO. 3 [Concomitant]
  4. ZOLOFT [Concomitant]
  5. NEURONTIN [Concomitant]

REACTIONS (3)
  - DIARRHOEA [None]
  - HEPATITIS [None]
  - STOMACH DISCOMFORT [None]
